FAERS Safety Report 26114094 (Version 1)
Quarter: 2025Q4

REPORT INFORMATION
  Report Type: Spontaneous
  Country: US (occurrence: US)
  Receive Date: 20251202
  Receipt Date: 20251202
  Transmission Date: 20260118
  Serious: No
  Sender: DEVA
  Company Number: US-DEVA-2025-US-043413

PATIENT
  Age: 72 Year
  Sex: Female
  Weight: 56.7 kg

DRUGS (1)
  1. CYCLOSPORINE OPHTHALMIC EMULSION [Suspect]
     Active Substance: CYCLOSPORINE
     Indication: Product used for unknown indication
     Dosage: 1 TO 2 DROPS TO EACH EYE DAILY
     Dates: start: 202508

REACTIONS (3)
  - Intentional product misuse [Unknown]
  - Vision blurred [Recovered/Resolved]
  - Product packaging issue [Unknown]

NARRATIVE: CASE EVENT DATE: 20250801
